FAERS Safety Report 6987395-X (Version None)
Quarter: 2010Q3

REPORT INFORMATION
  Report Type: 
  Country: None (occurrence: None)
  Receive Date: 20100916
  Receipt Date: 20100901
  Transmission Date: 20110219
  Serious: Yes (Death, Other)
  Sender: FDA-Public Use
  Company Number: PHHY2010CA56366

PATIENT
  Sex: Female

DRUGS (15)
  1. CLOZARIL [Suspect]
     Indication: MANIA
     Dosage: 100 MG/DAY
     Route: 048
     Dates: start: 20060923
  2. AMLODIPINE [Concomitant]
     Dosage: 1 MG QAM
  3. SPIRIVA [Concomitant]
     Dosage: 1 DAILY
  4. VENTOLIN [Concomitant]
     Dosage: Q 4 HOURS PRN
  5. ADVAIR DISKUS 100/50 [Concomitant]
     Dosage: MORNING AND EVENING
  6. PRAVACHOL [Concomitant]
     Dosage: 20 MG DAILY
  7. STATEX [Concomitant]
     Dosage: 5 MG Q 4 HOURS PRN
  8. DESYREL [Concomitant]
     Dosage: 50 MG HS
  9. CELEXA [Concomitant]
     Dosage: 20 MG DAILY
  10. ATIVAN [Concomitant]
     Dosage: 1 MG HS
  11. CALCIUM [Concomitant]
     Dosage: UNK
  12. VITAMIN D [Concomitant]
     Dosage: UNK
  13. LASIX [Concomitant]
     Dosage: 40 MG
  14. PREVACID [Concomitant]
     Dosage: 30 MG DAILY
  15. VITAMIN B-12 [Concomitant]
     Dosage: 1000 UG IM MONTHLY

REACTIONS (2)
  - ACUTE MYOCARDIAL INFARCTION [None]
  - DEATH [None]
